FAERS Safety Report 14511567 (Version 4)
Quarter: 2018Q2

REPORT INFORMATION
  Report Type: Spontaneous
  Country: AT (occurrence: AT)
  Receive Date: 20180209
  Receipt Date: 20180403
  Transmission Date: 20180711
  Serious: Yes (Life-Threatening, Hospitalization)
  Sender: FDA-Public Use
  Company Number: AT-ASTRAZENECA-2018SE15357

PATIENT
  Age: 88 Year
  Sex: Female
  Weight: 60 kg

DRUGS (11)
  1. SEROQUEL [Suspect]
     Active Substance: QUETIAPINE FUMARATE
     Route: 048
     Dates: start: 20171011, end: 20171012
  2. TEMESTA (LORAZEPAM) [Suspect]
     Active Substance: LORAZEPAM
     Indication: PRODUCT USED FOR UNKNOWN INDICATION
     Dosage: 1.0MG UNKNOWN
     Route: 042
     Dates: start: 20171013, end: 20171013
  3. TRITTICO [Suspect]
     Active Substance: TRAZODONE HYDROCHLORIDE
     Indication: PRODUCT USED FOR UNKNOWN INDICATION
     Route: 048
  4. TRITTICO [Suspect]
     Active Substance: TRAZODONE HYDROCHLORIDE
     Indication: PRODUCT USED FOR UNKNOWN INDICATION
     Route: 048
     Dates: start: 20171011, end: 20171011
  5. TRITTICO [Suspect]
     Active Substance: TRAZODONE HYDROCHLORIDE
     Indication: PRODUCT USED FOR UNKNOWN INDICATION
     Route: 048
     Dates: start: 20171010, end: 20171011
  6. NEBIVOLOL HYDROCHLORIDE [Suspect]
     Active Substance: NEBIVOLOL HYDROCHLORIDE
     Indication: PRODUCT USED FOR UNKNOWN INDICATION
     Dosage: 5.0MG UNKNOWN
     Route: 048
     Dates: start: 2017, end: 20171012
  7. TEMESTA (LORAZEPAM) [Suspect]
     Active Substance: LORAZEPAM
     Indication: PRODUCT USED FOR UNKNOWN INDICATION
     Dosage: 2 MG, UNK2.0MG UNKNOWN
     Route: 042
     Dates: start: 20171012, end: 20171012
  8. RISPERIDONE. [Suspect]
     Active Substance: RISPERIDONE
     Indication: PRODUCT USED FOR UNKNOWN INDICATION
     Dosage: 0.5 MG, UNK0.5MG UNKNOWN
     Route: 048
     Dates: start: 20171012, end: 20171013
  9. ENOXAPARIN SODIUM. [Concomitant]
     Active Substance: ENOXAPARIN SODIUM
     Indication: PRODUCT USED FOR UNKNOWN INDICATION
     Dosage: 40.0MG UNKNOWN
     Route: 065
     Dates: start: 20171012, end: 20171013
  10. CANDESARTAN CILEXETIL, HYDROCHLOROTHIAZIDE [Suspect]
     Active Substance: CANDESARTAN CILEXETIL\HYDROCHLOROTHIAZIDE
     Indication: PRODUCT USED FOR UNKNOWN INDICATION
     Dosage: UNSPECIFIED, DOSE: 16/12.5 MG STARTED
     Route: 048
     Dates: start: 2017, end: 20171012
  11. SEROQUEL [Suspect]
     Active Substance: QUETIAPINE FUMARATE
     Route: 048

REACTIONS (3)
  - Hypotonia [Recovered/Resolved]
  - Hypotension [Recovered/Resolved]
  - Altered state of consciousness [Recovered/Resolved]

NARRATIVE: CASE EVENT DATE: 20171013
